FAERS Safety Report 8980818 (Version 1)
Quarter: 2012Q4

REPORT INFORMATION
  Report Type: 
  Country: US (occurrence: US)
  Receive Date: 20121221
  Receipt Date: 20121221
  Transmission Date: 20130627
  Serious: Yes (Other)
  Sender: FDA-Public Use
  Company Number: US-PFIZER INC-2012323730

PATIENT
  Age: 55 Year
  Sex: Male
  Weight: 77 kg

DRUGS (5)
  1. CHANTIX [Suspect]
     Indication: SMOKING CESSATION THERAPY
     Dosage: 0.5 mg, daily
     Dates: start: 2011
  2. CHANTIX [Suspect]
     Dosage: 1 mg, 2x/day
     Dates: end: 20120115
  3. DEPAKOTE [Suspect]
     Indication: PSYCHOTIC DISORDER
     Dosage: UNK
     Dates: start: 201201
  4. VALIUM [Concomitant]
     Indication: ANXIETY
     Dosage: 10 mg, as needed
  5. TYLENOL W/CODEINE NO. 4 [Concomitant]
     Indication: HIP INJURY
     Dosage: UNK,as needed

REACTIONS (9)
  - Psychotic disorder [Recovered/Resolved]
  - Aggression [Unknown]
  - Memory impairment [Recovered/Resolved]
  - Hypersomnia [Unknown]
  - Tinnitus [Recovered/Resolved]
  - Feeling abnormal [Recovered/Resolved]
  - Hostility [Recovered/Resolved]
  - Anger [Recovered/Resolved]
  - Abnormal behaviour [Recovered/Resolved]
